FAERS Safety Report 19408164 (Version 1)
Quarter: 2021Q2

REPORT INFORMATION
  Report Type: Report from Study
  Country: CA (occurrence: CA)
  Receive Date: 20210611
  Receipt Date: 20210611
  Transmission Date: 20210717
  Serious: Yes (Other)
  Sender: FDA-Public Use
  Company Number: CA-PFIZER INC-2021641399

PATIENT
  Age: 58 Year
  Sex: Male

DRUGS (15)
  1. LYRICA [Suspect]
     Active Substance: PREGABALIN
     Dosage: 75 MG, AS NEEDED
     Route: 065
  2. ACTEMRA [Suspect]
     Active Substance: TOCILIZUMAB
     Indication: RHEUMATOID ARTHRITIS
     Dosage: 162 MG, WEEKLY
     Route: 058
  3. FOLIC ACID. [Suspect]
     Active Substance: FOLIC ACID
     Dosage: 5 MG
     Route: 065
  4. PREDNISONE. [Concomitant]
     Active Substance: PREDNISONE
     Dosage: 10 MG, 1X/DAY
     Route: 048
  5. METHOTREXATE. [Concomitant]
     Active Substance: METHOTREXATE
     Dosage: 2.5 MG, WEEKLY
     Route: 048
  6. SENOKOT [Concomitant]
     Active Substance: SENNOSIDES
     Indication: CONSTIPATION
  7. ADVIL [Concomitant]
     Active Substance: IBUPROFEN
     Dosage: 400 MG
     Route: 065
  8. NORTRIPTYLINE [Concomitant]
     Active Substance: NORTRIPTYLINE
     Dosage: 25 MG
     Route: 065
  9. PREDNISONE. [Concomitant]
     Active Substance: PREDNISONE
     Dosage: 7.5 MG 1 EVERY 2 WEEKS
     Route: 048
  10. DEPO?MEDROL [Suspect]
     Active Substance: METHYLPREDNISOLONE ACETATE
     Dosage: UNK, AS NEEDED
     Route: 058
  11. LYRICA [Suspect]
     Active Substance: PREGABALIN
     Dosage: 75 MG, 2X/DAY
     Route: 065
  12. OMEPRAZOLE. [Concomitant]
     Active Substance: OMEPRAZOLE
  13. LYRICA [Suspect]
     Active Substance: PREGABALIN
     Dosage: 25 MG
     Route: 065
  14. FLAXSEED [Concomitant]
     Active Substance: FLAX SEED
  15. VITAMIN D3 [Concomitant]
     Active Substance: CHOLECALCIFEROL
     Dosage: 1000 IU
     Route: 065

REACTIONS (18)
  - Rectal haemorrhage [Unknown]
  - Blood pressure increased [Unknown]
  - Gastrointestinal disorder [Unknown]
  - Therapeutic response shortened [Unknown]
  - Intentional product use issue [Unknown]
  - Dyspepsia [Unknown]
  - Paraesthesia [Unknown]
  - Peripheral swelling [Unknown]
  - Arthralgia [Unknown]
  - Synovial disorder [Unknown]
  - Constipation [Unknown]
  - Foot deformity [Unknown]
  - Hypoaesthesia [Unknown]
  - Off label use [Unknown]
  - Joint range of motion decreased [Unknown]
  - Joint swelling [Unknown]
  - Alanine aminotransferase increased [Unknown]
  - Drug ineffective [Unknown]
